FAERS Safety Report 5514246-2 (Version None)
Quarter: 2007Q4

REPORT INFORMATION
  Report Type: 
  Country: None (occurrence: None)
  Receive Date: 20071106
  Receipt Date: 20070330
  Transmission Date: 20080405
  Serious: Yes (Other)
  Sender: FDA-Public Use
  Company Number: US200703006668

PATIENT
  Age: 49 Year
  Sex: Male
  Weight: 68 kg

DRUGS (11)
  1. PROZAC [Suspect]
     Indication: DEPRESSION
     Dosage: 20 MG
     Dates: start: 20040101
  2. ABILIFY [Concomitant]
  3. ADDERALL (AMFETAMINE ASPARTATE, AMFETAMINE SULFATE, DEXAMFETAMINE SACC [Concomitant]
  4. BUSPAR [Concomitant]
  5. NORTRIPTYLINE HCL [Concomitant]
  6. LAMICTAL [Concomitant]
  7. NAPROXEN [Concomitant]
  8. ANTIBIOTICS [Concomitant]
  9. TRILAFON [Concomitant]
  10. TOPAMAX [Concomitant]
  11. LOXAPINE [Concomitant]

REACTIONS (2)
  - PSYCHOTIC DISORDER [None]
  - WEIGHT INCREASED [None]
